FAERS Safety Report 18929124 (Version 3)
Quarter: 2021Q1

REPORT INFORMATION
  Report Type: Spontaneous
  Country: JP (occurrence: JP)
  Receive Date: 20210223
  Receipt Date: 20210326
  Transmission Date: 20210420
  Serious: Yes (Hospitalization, Other)
  Sender: FDA-Public Use
  Company Number: JP-GILEAD-2021-0518282

PATIENT
  Age: 51 Year
  Sex: Male

DRUGS (7)
  1. ZEFIX [Concomitant]
     Active Substance: LAMIVUDINE
     Dosage: 100 MG, QD
     Route: 048
     Dates: start: 20010316
  2. VEMLIDY [Concomitant]
     Active Substance: TENOFOVIR ALAFENAMIDE FUMARATE
     Indication: HEPATITIS B
     Dosage: UNK
     Route: 065
     Dates: start: 20210107
  3. HEPSERA [Suspect]
     Active Substance: ADEFOVIR DIPIVOXIL
     Indication: CHRONIC HEPATITIS B
     Dosage: 10 MG, QD
     Route: 048
     Dates: start: 20030412, end: 20210106
  4. TAKECAB [Concomitant]
     Active Substance: VONOPRAZAN FUMARATE
     Dosage: 20 MG, QD
     Dates: start: 201904
  5. FEXOFENADINE [Concomitant]
     Active Substance: FEXOFENADINE HYDROCHLORIDE
     Dosage: 60 MG, BID
     Dates: start: 202006
  6. TOARASET [Concomitant]
     Active Substance: ACETAMINOPHEN\TRAMADOL HYDROCHLORIDE
     Dosage: 1 DF, TID
     Dates: start: 202011
  7. METOCLOPRAMIDE. [Concomitant]
     Active Substance: METOCLOPRAMIDE
     Dosage: 5 MG, TID
     Dates: start: 202011

REACTIONS (9)
  - Osteomalacia [Not Recovered/Not Resolved]
  - Hepatic cancer [Unknown]
  - Femur fracture [Recovering/Resolving]
  - Hypouricaemia [Unknown]
  - Hypophosphataemia [Unknown]
  - Fanconi syndrome acquired [Not Recovered/Not Resolved]
  - Acidosis [Unknown]
  - Groin pain [Unknown]
  - Renal impairment [Unknown]

NARRATIVE: CASE EVENT DATE: 20071221
